FAERS Safety Report 6539864-4 (Version None)
Quarter: 2010Q1

REPORT INFORMATION
  Report Type: 
  Country: None (occurrence: None)
  Receive Date: 20100115
  Receipt Date: 20100104
  Transmission Date: 20100710
  Serious: Yes (Other)
  Sender: FDA-Public Use
  Company Number: US-WATSON-2009-10223

PATIENT
  Sex: Female
  Weight: 89.796 kg

DRUGS (14)
  1. TRAZODONE HYDROCHLORIDE [Suspect]
     Indication: FIBROMYALGIA
     Dosage: 100 MG, DAILY
     Route: 048
     Dates: start: 20061215, end: 20091118
  2. TRAZODONE HYDROCHLORIDE [Suspect]
     Indication: INSOMNIA
  3. SAVELLA [Suspect]
     Indication: FIBROMYALGIA
     Dosage: 100 MG, DAILY
     Dates: start: 20091112, end: 20091118
  4. SAVELLA [Suspect]
     Dosage: 50 MG, DAILY
     Route: 048
     Dates: start: 20091108, end: 20091111
  5. SAVELLA [Suspect]
     Dosage: 25 MG, DAILY
     Route: 048
     Dates: start: 20091106, end: 20091107
  6. SAVELLA [Suspect]
     Dosage: 12.5 MG, DAILY
     Route: 048
     Dates: start: 20091105, end: 20091105
  7. VITAMIN A [Concomitant]
     Indication: VITAMIN D DEFICIENCY
     Dosage: UNK
     Route: 065
  8. HYDROCODONE [Concomitant]
     Indication: PAIN
     Dosage: UNK
     Route: 065
  9. NEXIUM [Concomitant]
     Indication: DYSPEPSIA
     Dosage: UNK
     Route: 065
  10. CYCLOBENZAPRINE [Concomitant]
     Indication: DRUG USE FOR UNKNOWN INDICATION
     Dosage: 5-10MG TID PRN
     Route: 048
  11. FLONASE [Concomitant]
     Indication: SEASONAL ALLERGY
     Dosage: UNK (AS REQUIRED)
  12. PREMARIN [Concomitant]
     Indication: DRUG USE FOR UNKNOWN INDICATION
     Dosage: UNK
     Route: 065
  13. VIVACTIL [Concomitant]
     Indication: DRUG USE FOR UNKNOWN INDICATION
     Dosage: 5 MG, DAILY
     Route: 048
  14. ZOLOFT [Concomitant]
     Indication: MAJOR DEPRESSION
     Dosage: 150 MG, DAILY
     Route: 048

REACTIONS (1)
  - SEROTONIN SYNDROME [None]
